FAERS Safety Report 7406482-5 (Version None)
Quarter: 2011Q2

REPORT INFORMATION
  Report Type: 
  Country: None (occurrence: None)
  Receive Date: 20110405
  Receipt Date: 20110405
  Transmission Date: 20111010
  Serious: No
  Sender: FDA-Public Use
  Company Number: None

PATIENT
  Sex: Female
  Weight: 86.1834 kg

DRUGS (2)
  1. PHENTERMINE [Suspect]
     Indication: WEIGHT CONTROL
     Dates: start: 20100701, end: 20110401
  2. TOPAMAX [Concomitant]

REACTIONS (1)
  - ABNORMAL BEHAVIOUR [None]
